FAERS Safety Report 11240626 (Version 2)
Quarter: 2015Q3

REPORT INFORMATION
  Report Type: Spontaneous
  Country: MA (occurrence: MA)
  Receive Date: 20150706
  Receipt Date: 20150717
  Transmission Date: 20151125
  Serious: Yes (Hospitalization, Other)
  Sender: FDA-Public Use
  Company Number: MA-PFIZER INC-2015218732

PATIENT
  Age: 70 Year
  Sex: Female

DRUGS (5)
  1. ZOEGAS [Suspect]
     Active Substance: ESOMEPRAZOLE MAGNESIUM
     Indication: CORONARY ARTERIAL STENT INSERTION
     Dosage: 20 MG, 1X/DAY
  2. CARDINOR /00984501/ [Suspect]
     Active Substance: CARVEDILOL
     Indication: CORONARY ARTERIAL STENT INSERTION
     Dosage: 25 MG, 1X/DAY
  3. PLAVIX [Suspect]
     Active Substance: CLOPIDOGREL BISULFATE
     Indication: CORONARY ARTERIAL STENT INSERTION
     Dosage: 1 DF, 1X/DAY
  4. TAHOR [Suspect]
     Active Substance: ATORVASTATIN CALCIUM
     Indication: CORONARY ARTERIAL STENT INSERTION
     Dosage: 20 MG, 1X/DAY
  5. CARDEGIC [Suspect]
     Active Substance: ASPIRIN LYSINE
     Indication: CORONARY ARTERIAL STENT INSERTION
     Dosage: 75 MG, 1X/DAY

REACTIONS (1)
  - Drug-induced liver injury [Recovering/Resolving]
